FAERS Safety Report 10152306 (Version 1)
Quarter: 2014Q2

REPORT INFORMATION
  Report Type: Spontaneous
  Country: US (occurrence: None)
  Receive Date: 20140502
  Receipt Date: 20140502
  Transmission Date: 20141212
  Serious: Yes (Hospitalization)
  Sender: FDA-Public Use
  Company Number: None

PATIENT
  Age: 48 Year
  Sex: Female
  Weight: 62.14 kg

DRUGS (1)
  1. LEXAPRO [Suspect]
     Indication: DEPRESSION
     Dosage: 1 PILL
     Route: 048
     Dates: start: 20140428, end: 20140428

REACTIONS (9)
  - Myocardial infarction [None]
  - Agitation [None]
  - Restlessness [None]
  - Feeling abnormal [None]
  - Paranoia [None]
  - Delusion [None]
  - Panic attack [None]
  - Serotonin syndrome [None]
  - Nightmare [None]
